FAERS Safety Report 19065144 (Version 1)
Quarter: 2021Q1

REPORT INFORMATION
  Report Type: Spontaneous
  Country: FR (occurrence: FR)
  Receive Date: 20210327
  Receipt Date: 20210327
  Transmission Date: 20210420
  Serious: Yes (Hospitalization)
  Sender: FDA-Public Use
  Company Number: FR-ACCORD-220698

PATIENT
  Age: 53 Year
  Sex: Male

DRUGS (6)
  1. AMISULPRIDE [Suspect]
     Active Substance: AMISULPRIDE
     Route: 048
     Dates: start: 20210124, end: 20210124
  2. VENLAFAXINE/VENLAFAXINE HYDROCHLORIDE [Suspect]
     Active Substance: VENLAFAXINE HYDROCHLORIDE
     Dosage: NP
     Route: 048
     Dates: start: 20210124, end: 20210124
  3. DIAZEPAM. [Suspect]
     Active Substance: DIAZEPAM
     Dosage: NP
     Route: 048
     Dates: start: 20210124, end: 20210124
  4. ZOPICLONE [Suspect]
     Active Substance: ZOPICLONE
     Route: 048
     Dates: start: 20210124, end: 20210124
  5. QUETIAPINE. [Suspect]
     Active Substance: QUETIAPINE
     Dosage: NP
     Route: 048
     Dates: start: 20210124, end: 20210124
  6. CLOMIPRAMINE/CLOMIPRAMINE HYDROCHLORIDE [Suspect]
     Active Substance: CLOMIPRAMINE
     Dosage: NP
     Route: 048
     Dates: start: 20210124, end: 20210124

REACTIONS (6)
  - Electrocardiogram QT prolonged [Unknown]
  - Poisoning deliberate [Recovered/Resolved]
  - Somnolence [Recovered/Resolved]
  - Hypothermia [Recovered/Resolved]
  - Intentional overdose [Unknown]
  - Rhabdomyolysis [Recovering/Resolving]

NARRATIVE: CASE EVENT DATE: 20210124
